FAERS Safety Report 4875747-3 (Version None)
Quarter: 2006Q1

REPORT INFORMATION
  Report Type: 
  Country: None (occurrence: None)
  Receive Date: 20060105
  Receipt Date: 20051227
  Transmission Date: 20060701
  Serious: Yes (Hospitalization)
  Sender: FDA-Public Use
  Company Number: DEWYE266027DEC05

PATIENT
  Sex: 0

DRUGS (2)
  1. VENLAFAXINE HCL [Suspect]
     Dosage: 75 MG 1X [ER 1 DAY ORAL
     Route: 048
     Dates: start: 20020101, end: 20050101
  2. ANTIBIOTICS (ANTIBIOTICS) [Concomitant]

REACTIONS (2)
  - CARDIAC DISORDER [None]
  - PNEUMONIA [None]
